FAERS Safety Report 6692147-4 (Version None)
Quarter: 2010Q2

REPORT INFORMATION
  Report Type: 
  Country: None (occurrence: None)
  Receive Date: 20100422
  Receipt Date: 20090603
  Transmission Date: 20101027
  Serious: No
  Sender: FDA-Public Use
  Company Number: US-ASTRAZENECA-2009UW04463

PATIENT
  Sex: Male
  Weight: 79.4 kg

DRUGS (4)
  1. TOPROL-XL [Suspect]
     Indication: HYPERTENSION
     Route: 048
     Dates: start: 20030201
  2. TOPROL-XL [Suspect]
     Route: 048
  3. LIPITOR [Concomitant]
  4. LEXAPRO [Concomitant]

REACTIONS (6)
  - BLOOD PRESSURE INCREASED [None]
  - DRUG DOSE OMISSION [None]
  - DRUG INEFFECTIVE [None]
  - FEELING JITTERY [None]
  - NERVOUSNESS [None]
  - TREMOR [None]
